FAERS Safety Report 15509715 (Version 1)
Quarter: 2018Q4

REPORT INFORMATION
  Report Type: Spontaneous
  Country: JP (occurrence: JP)
  Receive Date: 20181016
  Receipt Date: 20181016
  Transmission Date: 20190205
  Serious: Yes (Death, Hospitalization, Other)
  Sender: FDA-Public Use
  Company Number: JP-SA-2018SA284995

PATIENT
  Age: 45 Year
  Sex: Male

DRUGS (1)
  1. DIPHENHYDRAMINE. [Suspect]
     Active Substance: DIPHENHYDRAMINE
     Dosage: UNK, 1X

REACTIONS (16)
  - Cardiac arrest [Fatal]
  - Overdose [Fatal]
  - Pulseless electrical activity [Fatal]
  - Hypokinesia [Fatal]
  - Hepatic function abnormal [Fatal]
  - Altered state of consciousness [Fatal]
  - Acidosis [Fatal]
  - Coma scale abnormal [Fatal]
  - Renal impairment [Fatal]
  - Mydriasis [Fatal]
  - Rhabdomyolysis [Fatal]
  - Self-medication [Fatal]
  - Hypotension [Fatal]
  - Heart rate decreased [Fatal]
  - Moaning [Fatal]
  - Bundle branch block right [Fatal]
